FAERS Safety Report 8788655 (Version 2)
Quarter: 2012Q4

REPORT INFORMATION
  Report Type: 
  Country: JP (occurrence: JP)
  Receive Date: 20120915
  Receipt Date: 20121112
  Transmission Date: 20130627
  Serious: Yes (Life-Threatening)
  Sender: FDA-Public Use
  Company Number: JP-009507513-1209JPN002523

PATIENT
  Age: 83 Year
  Sex: Male

DRUGS (14)
  1. GLACTIV [Suspect]
     Indication: TYPE 2 DIABETES MELLITUS
     Dosage: 50 mg, qd
     Route: 048
     Dates: start: 20120823, end: 20120824
  2. VFEND [Suspect]
     Indication: BRONCHOPULMONARY ASPERGILLOSIS
     Dosage: 300 mg, bid
     Route: 048
     Dates: start: 20120815, end: 20120815
  3. VFEND [Suspect]
     Dosage: 200 mg, bid
     Route: 048
     Dates: start: 20120816
  4. BASEN [Suspect]
     Indication: TYPE 2 DIABETES MELLITUS
     Dosage: 0.2 mg, tid
     Route: 048
     Dates: start: 20120405, end: 2012
  5. BASEN [Suspect]
     Dosage: 0.3 mg, tid
     Route: 048
     Dates: start: 2012, end: 20120824
  6. WARFARIN [Concomitant]
  7. LASIX (FUROSEMIDE) [Concomitant]
  8. ALDACTONE A [Concomitant]
  9. HALFDIGOXIN [Concomitant]
  10. TAKEPRON [Concomitant]
  11. URSAMIC [Concomitant]
  12. ALINAMIN F (FURSULTIAMINE HYDROCHLORIDE) [Concomitant]
  13. MAGLAX (MAGNESIUM OXIDE) [Concomitant]
  14. MECOBALAMIN [Concomitant]

REACTIONS (1)
  - Hypoglycaemia [Recovered/Resolved]
